FAERS Safety Report 15010361 (Version 2)
Quarter: 2018Q2

REPORT INFORMATION
  Report Type: Spontaneous
  Country: JP (occurrence: JP)
  Receive Date: 20180614
  Receipt Date: 20180614
  Transmission Date: 20180711
  Serious: Yes (Hospitalization, Other)
  Sender: FDA-Public Use
  Company Number: JP-LUPIN PHARMACEUTICALS INC.-2018-04299

PATIENT
  Age: 67 Year
  Sex: Female

DRUGS (1)
  1. CEFTRIAXONE. [Suspect]
     Active Substance: CEFTRIAXONE
     Indication: INFECTED CYST
     Dosage: UNK
     Route: 065

REACTIONS (3)
  - Bile duct stone [Recovering/Resolving]
  - Pseudocholelithiasis [Recovering/Resolving]
  - Cholelithiasis [Recovering/Resolving]
